FAERS Safety Report 6494902-2 (Version None)
Quarter: 2009Q4

REPORT INFORMATION
  Report Type: 
  Country: None (occurrence: None)
  Receive Date: 20091214
  Receipt Date: 20090407
  Transmission Date: 20100525
  Serious: No
  Sender: FDA-Public Use
  Company Number: US-BRISTOL-MYERS SQUIBB COMPANY-14579023

PATIENT
  Sex: Male

DRUGS (11)
  1. ABILIFY [Suspect]
     Indication: BIPOLAR DISORDER
     Dosage: DOSE DECREASED TO 5MG,1/2TABLETQD AND FINALLY DISCONTINUED
  2. SEROQUEL [Concomitant]
  3. ATIVAN [Concomitant]
  4. TOPAMAX [Concomitant]
  5. KLONOPIN [Concomitant]
  6. CYMBALTA [Concomitant]
  7. ADDERALL 10 [Concomitant]
  8. VITAMIN D [Concomitant]
  9. ASPIRIN [Concomitant]
  10. SIMVASTATIN [Concomitant]
  11. ENABLEX [Concomitant]

REACTIONS (1)
  - DYSARTHRIA [None]
